FAERS Safety Report 9366152 (Version 1)
Quarter: 2013Q2

REPORT INFORMATION
  Report Type: Spontaneous
  Country: IT (occurrence: IT)
  Receive Date: 20130625
  Receipt Date: 20130625
  Transmission Date: 20140414
  Serious: Yes (Other)
  Sender: FDA-Public Use
  Company Number: IT-FRI-1000046119

PATIENT
  Age: 67 Year
  Sex: Female

DRUGS (1)
  1. NEBIVOLOL [Suspect]
     Indication: HYPERTENSION
     Dosage: 5 MG
     Route: 048
     Dates: start: 20130123

REACTIONS (2)
  - Hypertension [Recovering/Resolving]
  - No therapeutic response [Recovering/Resolving]
